FAERS Safety Report 10178030 (Version 3)
Quarter: 2014Q2

REPORT INFORMATION
  Report Type: Spontaneous
  Country: PT (occurrence: PT)
  Receive Date: 20140517
  Receipt Date: 20140606
  Transmission Date: 20141212
  Serious: Yes (Other)
  Sender: FDA-Public Use
  Company Number: PT-009507513-1405PRT005995

PATIENT
  Age: 41 Year
  Sex: Female

DRUGS (3)
  1. IMPLANON [Suspect]
     Indication: CONTRACEPTION
     Dosage: UNK
     Dates: start: 201009, end: 20140527
  2. IMPLANON [Suspect]
     Dosage: UNK
     Dates: start: 20140527
  3. CORTISONE [Concomitant]

REACTIONS (5)
  - Systemic lupus erythematosus [Unknown]
  - Hepatic cirrhosis [Unknown]
  - Metrorrhagia [Recovered/Resolved]
  - Incorrect drug administration duration [Not Recovered/Not Resolved]
  - Polymenorrhoea [Recovered/Resolved]
